FAERS Safety Report 4614678-0 (Version None)
Quarter: 2005Q2

REPORT INFORMATION
  Report Type: 
  Country: None (occurrence: None)
  Receive Date: 20050311
  Receipt Date: 20050119
  Transmission Date: 20051028
  Serious: No
  Sender: FDA-Public Use
  Company Number: 2005-BP-00954BP

PATIENT
  Age: 85 Year
  Sex: Female

DRUGS (2)
  1. SPIRIVA [Suspect]
     Dosage: (18 MCG)
  2. ADVAIR DISKUS 100/50 [Concomitant]

REACTIONS (3)
  - COUGH [None]
  - DYSPHONIA [None]
  - LARYNGOSPASM [None]
